FAERS Safety Report 8221340-4 (Version None)
Quarter: 2012Q1

REPORT INFORMATION
  Report Type: 
  Country: None (occurrence: None)
  Receive Date: 20120320
  Receipt Date: 20120315
  Transmission Date: 20120608
  Serious: Yes (Other)
  Sender: FDA-Public Use
  Company Number: PHHY2012DE023250

PATIENT
  Age: 77 Year
  Sex: Female

DRUGS (4)
  1. ACE INHIBITORS [Concomitant]
  2. AROMASIN [Concomitant]
  3. ZOMETA [Suspect]
     Indication: METASTASES TO BONE
     Dosage: 4 MG/ 5ML EVERY 4 WEEKS
     Route: 042
     Dates: start: 20111101
  4. DIURETICS [Concomitant]

REACTIONS (2)
  - SYNCOPE [None]
  - INJURY [None]
